FAERS Safety Report 4446425-X (Version None)
Quarter: 2004Q3

REPORT INFORMATION
  Report Type: 
  Country: None (occurrence: None)
  Receive Date: 20040902
  Receipt Date: 20040825
  Transmission Date: 20050211
  Serious: Yes (Death, Life-Threatening, Hospitalization, Other)
  Sender: FDA-Public Use
  Company Number: 2004-08-1516

PATIENT
  Age: 68 Year
  Sex: Male

DRUGS (3)
  1. CELESTONE SOLUSPAN [Suspect]
     Indication: SINUSITIS
     Dates: start: 20040821
  2. CLINDAMYCIN [Suspect]
     Dosage: 300 MG
  3. SACCHAROMYCES BOULARDII [Suspect]
     Indication: SINUSITIS

REACTIONS (7)
  - APNOEA [None]
  - BACK PAIN [None]
  - CORONARY ARTERY DISEASE [None]
  - DYSPNOEA [None]
  - ISCHAEMIA [None]
  - SYNCOPE [None]
  - VOMITING [None]
